FAERS Safety Report 8942890 (Version 2)
Quarter: 2013Q1

REPORT INFORMATION
  Report Type: Spontaneous
  Country: DK (occurrence: CA)
  Receive Date: 20121204
  Receipt Date: 20130121
  Transmission Date: 20140127
  Serious: Yes (Other)
  Sender: FDA-Public Use
  Company Number: CA-FRI-1000040753

PATIENT
  Age: 72 Year
  Sex: Female

DRUGS (5)
  1. ESCITALOPRAM [Suspect]
     Indication: ANXIETY
     Dosage: 20 MG
     Route: 048
  2. ESCITALOPRAM [Suspect]
     Indication: DEPRESSION
     Dosage: 10 MG
     Route: 048
     Dates: end: 2012
  3. ALCOHOL [Suspect]
  4. ACETYLSALICYLIC ACID [Concomitant]
     Dosage: DAILY DOSE NOT REPORTED.
     Route: 048
  5. NORVASC [Concomitant]
     Route: 048

REACTIONS (6)
  - Convulsion [Recovered/Resolved]
  - Urinary retention [Recovered/Resolved]
  - Agitation [Recovered/Resolved]
  - Confusional state [Recovered/Resolved]
  - Blood sodium decreased [Recovered/Resolved]
  - Skin disorder [Recovered/Resolved]
